FAERS Safety Report 19149784 (Version 5)
Quarter: 2022Q2

REPORT INFORMATION
  Report Type: Report from Study
  Country: US (occurrence: US)
  Receive Date: 20210417
  Receipt Date: 20220409
  Transmission Date: 20220721
  Serious: Yes (Hospitalization, Other)
  Sender: FDA-Public Use
  Company Number: NVSC2021US084070

PATIENT
  Age: 59 Year
  Sex: Female

DRUGS (3)
  1. ENTRESTO [Suspect]
     Active Substance: SACUBITRIL\VALSARTAN
     Indication: Cardiac failure
     Dosage: 150 MG, BID, (49/51 MG AM, 26/24 MG PM)
     Route: 048
     Dates: start: 20180101
  2. ENTRESTO [Suspect]
     Active Substance: SACUBITRIL\VALSARTAN
     Dosage: UNK
     Route: 065
  3. ENTRESTO [Suspect]
     Active Substance: SACUBITRIL\VALSARTAN
     Dosage: 1 DOSAGE FORM, BID (49/51 MG AM, 26/24 MG PM)
     Route: 065
     Dates: start: 2020

REACTIONS (5)
  - Cellulitis [Unknown]
  - Fall [Unknown]
  - Blister [Unknown]
  - Oedema [Unknown]
  - Haematoma [Unknown]

NARRATIVE: CASE EVENT DATE: 20180101
